FAERS Safety Report 6736288-1 (Version None)
Quarter: 2010Q2

REPORT INFORMATION
  Report Type: 
  Country: None (occurrence: None)
  Receive Date: 20100521
  Receipt Date: 20100510
  Transmission Date: 20101027
  Serious: Yes (Other)
  Sender: FDA-Public Use
  Company Number: US-JNJCH-2010011286

PATIENT
  Age: 4 Year
  Sex: Male
  Weight: 17.2 kg

DRUGS (3)
  1. CHILDREN'S BENADRYL ALLERGY [Suspect]
     Indication: SWELLING
     Dosage: TEXT:1 TEASPOONFUL 3X A DAY
     Route: 048
     Dates: start: 20100417, end: 20100418
  2. MOTRIN [Suspect]
     Indication: OROPHARYNGEAL PAIN
     Dosage: TEXT:UNKNOWN
     Route: 048
     Dates: start: 20100416, end: 20100418
  3. CHILDREN'S TYLENOL SUSPENSION [Suspect]
     Indication: SWELLING
     Dosage: TEXT:UNKNOWN
     Route: 048
     Dates: start: 20100417, end: 20100417

REACTIONS (5)
  - CONDITION AGGRAVATED [None]
  - HYPERSENSITIVITY [None]
  - OFF LABEL USE [None]
  - PRODUCT QUALITY ISSUE [None]
  - WRONG DRUG ADMINISTERED [None]
